FAERS Safety Report 15435130 (Version 6)
Quarter: 2019Q1

REPORT INFORMATION
  Report Type: Report from Study
  Country: JP (occurrence: JP)
  Receive Date: 20180927
  Receipt Date: 20190220
  Transmission Date: 20190417
  Serious: Yes (Death, Life-Threatening, Hospitalization)
  Sender: FDA-Public Use
  Company Number: JP-ROCHE-2191118

PATIENT
  Age: 73 Year
  Sex: Male
  Weight: 76 kg

DRUGS (1)
  1. ATEZOLIZUMAB. [Suspect]
     Active Substance: ATEZOLIZUMAB
     Indication: NON-SMALL CELL LUNG CANCER
     Route: 041
     Dates: start: 20180820, end: 20180820

REACTIONS (6)
  - Pyrexia [Recovered/Resolved]
  - Blood creatine phosphokinase increased [Recovering/Resolving]
  - Disseminated intravascular coagulation [Not Recovered/Not Resolved]
  - Colitis [Fatal]
  - Platelet count decreased [Not Recovered/Not Resolved]
  - C-reactive protein increased [Not Recovered/Not Resolved]

NARRATIVE: CASE EVENT DATE: 20180830
